FAERS Safety Report 15337666 (Version 1)
Quarter: 2018Q3

REPORT INFORMATION
  Report Type: Spontaneous
  Country: JP (occurrence: JP)
  Receive Date: 20180831
  Receipt Date: 20180831
  Transmission Date: 20181010
  Serious: Yes (Hospitalization)
  Sender: FDA-Public Use
  Company Number: JP-TEVA-2018-JP-950459

PATIENT
  Age: 28 Year
  Sex: Male
  Weight: 66.1 kg

DRUGS (3)
  1. PREDNISOLONE. [Suspect]
     Active Substance: PREDNISOLONE
     Indication: DERMATOMYOSITIS
     Dosage: 11 MILLIGRAM DAILY;
     Route: 065
  2. PREDNISOLONE. [Suspect]
     Active Substance: PREDNISOLONE
     Indication: DERMATOMYOSITIS
     Dosage: 10 MILLIGRAM DAILY;
     Route: 065
     Dates: start: 201610
  3. PREDNISOLONE. [Suspect]
     Active Substance: PREDNISOLONE
     Indication: DERMATOMYOSITIS
     Route: 065
     Dates: start: 201410

REACTIONS (4)
  - Pleural effusion [Recovering/Resolving]
  - Tuberculous pleurisy [Recovering/Resolving]
  - Mycobacterium abscessus infection [Recovering/Resolving]
  - Pleurisy [Recovering/Resolving]
